FAERS Safety Report 5412695-4 (Version None)
Quarter: 2007Q3

REPORT INFORMATION
  Report Type: 
  Country: None (occurrence: None)
  Receive Date: 20070813
  Receipt Date: 20070801
  Transmission Date: 20080115
  Serious: Yes (Life-Threatening, Hospitalization, Disabling)
  Sender: FDA-Public Use
  Company Number: SG-SHR-SG-2007-028410

PATIENT
  Age: 45 Year
  Sex: Male

DRUGS (8)
  1. MABCAMPATH [Suspect]
     Indication: IMMUNOSUPPRESSION
     Dosage: 20 MG, 1X/DAY
     Route: 042
     Dates: start: 20070726, end: 20070727
  2. SOLU-MEDROL [Concomitant]
     Indication: RENAL TRANSPLANT
     Route: 042
  3. PIRITION [Concomitant]
     Indication: RENAL TRANSPLANT
     Route: 042
  4. ROCEPHIN [Concomitant]
     Indication: RENAL TRANSPLANT
     Route: 042
  5. ANAESTHETICS [Concomitant]
     Indication: RENAL TRANSPLANT
  6. CIPROFLOXACIN HCL [Concomitant]
     Route: 042
  7. ZANTAC 150 [Concomitant]
     Route: 042
  8. DOPAMINE HCL [Concomitant]
     Route: 042

REACTIONS (5)
  - ACTIVATED PARTIAL THROMBOPLASTIN TIME PROLONGED [None]
  - COAGULOPATHY [None]
  - GRAFT HAEMORRHAGE [None]
  - HAEMORRHAGE [None]
  - HYPOTENSION [None]
